FAERS Safety Report 18981364 (Version 3)
Quarter: 2021Q2

REPORT INFORMATION
  Report Type: Spontaneous
  Country: US (occurrence: US)
  Receive Date: 20210308
  Receipt Date: 20210406
  Transmission Date: 20210717
  Serious: No
  Sender: FDA-Public Use
  Company Number: US-BAYER-2021-086201

PATIENT
  Age: 77 Year
  Sex: Female

DRUGS (6)
  1. MAGNESIUM [Concomitant]
     Active Substance: MAGNESIUM
  2. VITAMIN D [VITAMIN D NOS] [Concomitant]
     Active Substance: VITAMIN D NOS
  3. MIRALAX [Suspect]
     Active Substance: POLYETHYLENE GLYCOL 3350
     Indication: GASTROINTESTINAL DISORDER
     Dosage: 1 TEASPOON
     Route: 048
     Dates: start: 20210219
  4. VITAMIN B12 [Concomitant]
     Active Substance: CYANOCOBALAMIN
  5. VITAMIN D [VITAMIN D NOS] [Concomitant]
     Active Substance: VITAMIN D NOS
  6. ASCORBIC ACID. [Concomitant]
     Active Substance: ASCORBIC ACID

REACTIONS (9)
  - Oral pain [Unknown]
  - Chest discomfort [None]
  - Tongue discomfort [Unknown]
  - Burning sensation [Unknown]
  - Diarrhoea [None]
  - Underdose [None]
  - Oral discomfort [Unknown]
  - Dizziness [Unknown]
  - Glossodynia [Unknown]

NARRATIVE: CASE EVENT DATE: 20210224
